FAERS Safety Report 16961721 (Version 1)
Quarter: 2019Q4

REPORT INFORMATION
  Report Type: Spontaneous
  Country: US (occurrence: US)
  Receive Date: 20191024
  Receipt Date: 20191024
  Transmission Date: 20200122
  Serious: Yes (Disabling)
  Sender: FDA-Public Use
  Company Number: None

PATIENT
  Age: 39 Year
  Sex: Female
  Weight: 58.5 kg

DRUGS (8)
  1. PRENATAL VITAMIN [Concomitant]
     Active Substance: VITAMINS
  2. MAGNESIUM [Concomitant]
     Active Substance: MAGNESIUM
  3. CALCIUM [Concomitant]
     Active Substance: CALCIUM
  4. LEXAPRO [Concomitant]
     Active Substance: ESCITALOPRAM OXALATE
  5. VIT D [Concomitant]
     Active Substance: VITAMIN D NOS
  6. FLONASE [Concomitant]
     Active Substance: FLUTICASONE PROPIONATE
  7. GADOBUTROL. [Suspect]
     Active Substance: GADOBUTROL
     Indication: MAGNETIC RESONANCE IMAGING
     Dosage: 0.1 ML
     Dates: start: 20190309, end: 20190309
  8. VITAMIN C [Concomitant]
     Active Substance: ASCORBIC ACID

REACTIONS (19)
  - Hypertension [None]
  - Thirst [None]
  - Muscle spasms [None]
  - Formication [None]
  - Myopathy [None]
  - Joint stiffness [None]
  - Diarrhoea [None]
  - Paraesthesia [None]
  - Malaise [None]
  - Throat tightness [None]
  - Burning sensation [None]
  - Tinnitus [None]
  - Heart rate irregular [None]
  - Arthralgia [None]
  - Dizziness [None]
  - Muscular weakness [None]
  - Chills [None]
  - Hypoaesthesia [None]
  - Hand-arm vibration syndrome [None]

NARRATIVE: CASE EVENT DATE: 20190313
